FAERS Safety Report 5005550-5 (Version None)
Quarter: 2006Q2

REPORT INFORMATION
  Report Type: 
  Country: None (occurrence: None)
  Receive Date: 20060518
  Receipt Date: 20060509
  Transmission Date: 20061013
  Serious: Yes (Disabling)
  Sender: FDA-Public Use
  Company Number: CA-JNJFOC-20060105744

PATIENT
  Age: 44 Year
  Sex: Female
  Weight: 70.31 kg

DRUGS (5)
  1. TOPAMAX [Suspect]
     Route: 048
  2. TOPAMAX [Suspect]
     Route: 048
  3. AMITRIPTYLINE HCL [Interacting]
  4. OXYCOCET [Interacting]
  5. OXYCOCET [Interacting]

REACTIONS (9)
  - AGITATION [None]
  - ANXIETY [None]
  - CRYING [None]
  - DIARRHOEA [None]
  - DRUG INTERACTION [None]
  - MALAISE [None]
  - PANIC ATTACK [None]
  - PARANOIA [None]
  - TREMOR [None]
